FAERS Safety Report 11731342 (Version 1)
Quarter: 2015Q4

REPORT INFORMATION
  Report Type: Spontaneous
  Country: US (occurrence: US)
  Receive Date: 20151110
  Receipt Date: 20151110
  Transmission Date: 20160304
  Serious: No
  Sender: FDA-Public Use
  Company Number: US-ELI_LILLY_AND_COMPANY-US201110006033

PATIENT
  Age: 74 Year
  Sex: Female

DRUGS (3)
  1. FORTEO [Suspect]
     Active Substance: TERIPARATIDE
     Indication: OSTEOPOROSIS
     Dosage: 20 UG, QD
     Route: 065
     Dates: start: 20110718
  2. FORTEO [Suspect]
     Active Substance: TERIPARATIDE
     Dosage: 20 UG, QD
     Route: 065
  3. FORTEO [Suspect]
     Active Substance: TERIPARATIDE
     Dosage: 20 UG, QD
     Route: 065

REACTIONS (10)
  - Injection site haemorrhage [Unknown]
  - Fall [Recovered/Resolved]
  - Injection site pain [Unknown]
  - Musculoskeletal stiffness [Unknown]
  - Musculoskeletal pain [Recovered/Resolved]
  - Memory impairment [Unknown]
  - Aneurysm [Unknown]
  - Injection site bruising [Unknown]
  - Muscle strain [Unknown]
  - Hypertension [Unknown]

NARRATIVE: CASE EVENT DATE: 201110
